FAERS Safety Report 6581633-3 (Version None)
Quarter: 2010Q1

REPORT INFORMATION
  Report Type: 
  Country: None (occurrence: None)
  Receive Date: 20100215
  Receipt Date: 20100205
  Transmission Date: 20100710
  Serious: Yes (Hospitalization)
  Sender: FDA-Public Use
  Company Number: JP-ASTRAZENECA-2010SE04109

PATIENT
  Age: 66 Year
  Sex: Male

DRUGS (3)
  1. OMEPRAL [Suspect]
     Indication: REFLUX OESOPHAGITIS
     Route: 048
     Dates: start: 20070523, end: 20070626
  2. VASOLAN [Concomitant]
     Route: 048
     Dates: start: 20060118, end: 20090810
  3. PIMENOL [Concomitant]
     Route: 048
     Dates: start: 20060118, end: 20090810

REACTIONS (1)
  - COLITIS COLLAGENOUS [None]
